FAERS Safety Report 9267487 (Version 1)
Quarter: 2013Q2

REPORT INFORMATION
  Report Type: Spontaneous
  Country: US (occurrence: US)
  Receive Date: 20130502
  Receipt Date: 20130502
  Transmission Date: 20140414
  Serious: No
  Sender: FDA-Public Use
  Company Number: US-BAYER-2013-054835

PATIENT
  Sex: Female

DRUGS (2)
  1. OCELLA [Suspect]
  2. SPIRONOLACTONE [Concomitant]
     Dosage: 50 MG, QD

REACTIONS (2)
  - Oestradiol decreased [None]
  - Progesterone decreased [None]
